FAERS Safety Report 4445705-1 (Version None)
Quarter: 2004Q3

REPORT INFORMATION
  Report Type: 
  Country: None (occurrence: None)
  Receive Date: 20040908
  Receipt Date: 20040908
  Transmission Date: 20050211
  Serious: Yes (Life-Threatening, Hospitalization, Other)
  Sender: FDA-Public Use
  Company Number: None

PATIENT
  Sex: Female
  Weight: 74.8435 kg

DRUGS (2)
  1. ZELNORM [Suspect]
     Indication: CROHN'S DISEASE
     Dosage: 1/DAY BY MOUTH
     Dates: start: 20030410, end: 20030417
  2. ZELNORM [Suspect]
     Indication: IRRITABLE BOWEL SYNDROME
     Dosage: 1/DAY BY MOUTH
     Dates: start: 20030410, end: 20030417

REACTIONS (8)
  - CONFUSIONAL STATE [None]
  - COUGH [None]
  - DIARRHOEA [None]
  - FEELING ABNORMAL [None]
  - HEPATIC FAILURE [None]
  - INFLUENZA [None]
  - PYREXIA [None]
  - VOMITING [None]
